FAERS Safety Report 5292040-8 (Version None)
Quarter: 2007Q2

REPORT INFORMATION
  Report Type: 
  Country: None (occurrence: None)
  Receive Date: 20070406
  Receipt Date: 20070406
  Transmission Date: 20071010
  Serious: Yes (Life-Threatening, Hospitalization)
  Sender: FDA-Public Use
  Company Number: None

PATIENT
  Sex: Female
  Weight: 56.246 kg

DRUGS (1)
  1. REMODULIN [Suspect]
     Indication: PULMONARY HYPERTENSION
     Dosage: 96 NG/KG/MIN 83 CC/24 HR CONT IV
     Route: 042

REACTIONS (5)
  - CHILLS [None]
  - KLEBSIELLA INFECTION [None]
  - PYREXIA [None]
  - SYNCOPE [None]
  - WHITE BLOOD CELL COUNT INCREASED [None]
